FAERS Safety Report 5358479-7 (Version None)
Quarter: 2007Q2

REPORT INFORMATION
  Report Type: 
  Country: None (occurrence: None)
  Receive Date: 20070614
  Receipt Date: 20070614
  Transmission Date: 20071010
  Serious: Yes (Other)
  Sender: FDA-Public Use
  Company Number: None

PATIENT
  Sex: Male

DRUGS (2)
  1. REVLIMID [Suspect]
     Indication: MULTIPLE MYELOMA
     Dosage: 25 MG 21MG DAILY 21D/28D PO
     Route: 048
     Dates: start: 20070219, end: 20070607
  2. DEXAMETHASONE 0.5MG TAB [Concomitant]

REACTIONS (2)
  - BODY TEMPERATURE INCREASED [None]
  - WHITE BLOOD CELL COUNT DECREASED [None]
